FAERS Safety Report 26097832 (Version 1)
Quarter: 2025Q4

REPORT INFORMATION
  Report Type: Spontaneous
  Country: CN (occurrence: CN)
  Receive Date: 20251127
  Receipt Date: 20251127
  Transmission Date: 20260118
  Serious: Yes (Other)
  Sender: GRIFOLS
  Company Number: CN-IGSA-BIG0039315

PATIENT
  Age: 93 Year
  Sex: Male
  Weight: 45 kg

DRUGS (1)
  1. HUMAN ALBUMIN GRIFOLS 20% [Suspect]
     Active Substance: ALBUMIN HUMAN
     Indication: Hypoproteinaemia
     Dosage: 10 GRAM, QD
     Route: 041
     Dates: start: 20251007, end: 20251011

REACTIONS (2)
  - N-terminal prohormone brain natriuretic peptide increased [Unknown]
  - Cardiac failure [Unknown]

NARRATIVE: CASE EVENT DATE: 20251012
